FAERS Safety Report 9373290 (Version 2)
Quarter: 2013Q3

REPORT INFORMATION
  Report Type: Spontaneous
  Country: FR (occurrence: FR)
  Receive Date: 20130627
  Receipt Date: 20130801
  Transmission Date: 20140515
  Serious: Yes (Death, Hospitalization)
  Sender: FDA-Public Use
  Company Number: FR-TEVA-415398ISR

PATIENT
  Age: 90 Year
  Sex: Female

DRUGS (1)
  1. FUROSEMIDE TEVA 40 MG [Suspect]
     Route: 048
     Dates: start: 201306, end: 201306

REACTIONS (13)
  - Somnolence [Unknown]
  - General physical health deterioration [Not Recovered/Not Resolved]
  - Dehydration [Unknown]
  - Phlebitis [Unknown]
  - Aphagia [Unknown]
  - Autonomic nervous system imbalance [Unknown]
  - Peripheral ischaemia [Unknown]
  - Arterial disorder [Unknown]
  - Peripheral artery stenosis [Unknown]
  - Cognitive disorder [Unknown]
  - Cardiac failure [Unknown]
  - Gangrene [Unknown]
  - Death [Fatal]
